FAERS Safety Report 15348537 (Version 1)
Quarter: 2018Q3

REPORT INFORMATION
  Report Type: Spontaneous
  Country: US (occurrence: US)
  Receive Date: 20180904
  Receipt Date: 20180904
  Transmission Date: 20181010
  Serious: No
  Sender: FDA-Public Use
  Company Number: US-OREXO US, INC.-ORE201710-000101

PATIENT
  Age: 27 Year
  Sex: Female
  Weight: 54.48 kg

DRUGS (1)
  1. ZUBSOLV [Suspect]
     Active Substance: BUPRENORPHINE HYDROCHLORIDE\NALOXONE HYDROCHLORIDE
     Indication: DRUG DEPENDENCE
     Dosage: 8MG ONE TABLET TWO TIMES A DAY

REACTIONS (2)
  - Wrong technique in product usage process [Unknown]
  - Exposure during pregnancy [None]
